FAERS Safety Report 5796931-0 (Version None)
Quarter: 2008Q2

REPORT INFORMATION
  Report Type: 
  Country: None (occurrence: None)
  Receive Date: 20080618
  Receipt Date: 20070611
  Transmission Date: 20081010
  Serious: Yes (Other)
  Sender: FDA-Public Use
  Company Number: 200713027US

PATIENT
  Age: 63 Year
  Sex: Female

DRUGS (3)
  1. LANTUS [Suspect]
     Indication: DIABETES MELLITUS
  2. CLARITIN [Suspect]
     Indication: COUGH
     Dosage: 10 MG QD PO
     Route: 048
     Dates: end: 20070328
  3. ENALAPRIL MALEATE [Concomitant]

REACTIONS (4)
  - BLOOD GLUCOSE INCREASED [None]
  - DIZZINESS [None]
  - DYSARTHRIA [None]
  - HYPERGLYCAEMIA [None]
